FAERS Safety Report 8594909-5 (Version None)
Quarter: 2012Q3

REPORT INFORMATION
  Report Type: 
  Country: None (occurrence: None)
  Receive Date: 20120815
  Receipt Date: 20120809
  Transmission Date: 20120928
  Serious: Yes (Other)
  Sender: FDA-Public Use
  Company Number: FR-PFIZER INC-2011117187

PATIENT
  Age: 41 Year
  Sex: Female
  Weight: 54 kg

DRUGS (2)
  1. TALIGLUCERASE ALFA [Suspect]
     Indication: GAUCHER'S DISEASE
     Dosage: 3200IU, CYCLIC (EVERY FORTNIGHT)
     Route: 042
     Dates: start: 20100728, end: 20110518
  2. ASPIRIN [Concomitant]
     Dosage: 75 MG, UNK
     Route: 048
     Dates: start: 20110201

REACTIONS (5)
  - OEDEMA MOUTH [None]
  - RHINITIS [None]
  - HYPERSENSITIVITY [None]
  - OROPHARYNGEAL DISCOMFORT [None]
  - DRUG INTOLERANCE [None]
